FAERS Safety Report 6172159-X (Version None)
Quarter: 2009Q2

REPORT INFORMATION
  Report Type: 
  Country: None (occurrence: None)
  Receive Date: 20090429
  Receipt Date: 20080530
  Transmission Date: 20091009
  Serious: No
  Sender: FDA-Public Use
  Company Number: A0730335A

PATIENT
  Age: 71 Year
  Sex: Male

DRUGS (4)
  1. ZOFRAN [Suspect]
     Indication: PROPHYLAXIS OF NAUSEA AND VOMITING
     Dosage: 16MG AS REQUIRED
     Route: 042
     Dates: start: 20080401
  2. DEXAMETHASONE 4MG TAB [Concomitant]
  3. CISPLATIN [Concomitant]
  4. ETOPOSIDE [Concomitant]

REACTIONS (1)
  - EXTRAVASATION [None]
